FAERS Safety Report 9037828 (Version 2)
Quarter: 2013Q1

REPORT INFORMATION
  Report Type: Spontaneous
  Country: FR (occurrence: FR)
  Receive Date: 20130129
  Receipt Date: 20130205
  Transmission Date: 20140127
  Serious: Yes (Other)
  Sender: FDA-Public Use
  Company Number: FR-BRISTOL-MYERS SQUIBB COMPANY-17305350

PATIENT
  Age: 47 Year
  Sex: Male

DRUGS (1)
  1. YERVOY [Suspect]
     Indication: METASTATIC MALIGNANT MELANOMA
     Dosage: 4 INFUSIONS; THE LAST INFUSION:17-JUL-2012

REACTIONS (4)
  - Raynaud^s phenomenon [Recovering/Resolving]
  - Cyanosis [Recovering/Resolving]
  - Extremity necrosis [Recovering/Resolving]
  - Peripheral sensory neuropathy [Unknown]
